FAERS Safety Report 7307553-4 (Version None)
Quarter: 2011Q1

REPORT INFORMATION
  Report Type: 
  Country: None (occurrence: None)
  Receive Date: 20110211
  Receipt Date: 20110203
  Transmission Date: 20110831
  Serious: Yes (Death, Hospitalization)
  Sender: FDA-Public Use
  Company Number: 112591

PATIENT
  Age: 10 Year
  Sex: Female

DRUGS (1)
  1. ETOPOSIDE [Suspect]
     Indication: CHEMOTHERAPY
     Dosage: 100 MG/ML2

REACTIONS (3)
  - MYOCARDIAL INFARCTION [None]
  - ACUTE MYELOID LEUKAEMIA [None]
  - TOXICITY TO VARIOUS AGENTS [None]
